FAERS Safety Report 5953524-X (Version None)
Quarter: 2008Q4

REPORT INFORMATION
  Report Type: 
  Country: None (occurrence: None)
  Receive Date: 20081114
  Receipt Date: 20081112
  Transmission Date: 20090506
  Serious: Yes (Death)
  Sender: FDA-Public Use
  Company Number: PHBS2008US06311

PATIENT
  Age: 63 Year
  Sex: Male

DRUGS (6)
  1. CYCLOSPORINE [Suspect]
     Indication: HEART TRANSPLANT
  2. MYCOPHENOLATE MOFETIL [Suspect]
     Indication: HEART TRANSPLANT
  3. PREDNISONE TAB [Suspect]
     Indication: HEART TRANSPLANT
  4. METHYLPREDNISOLONE 16MG TAB [Concomitant]
     Route: 042
  5. ORTHOCLONE OKT3 [Concomitant]
  6. PLASMAPHERESIS [Concomitant]

REACTIONS (14)
  - ASCITES [None]
  - CARDIAC FAILURE [None]
  - COMPLICATIONS OF TRANSPLANTED HEART [None]
  - DYSPNOEA [None]
  - EPSTEIN-BARR VIRUS ASSOCIATED LYMPHOPROLIFERATIVE DISORDER [None]
  - EPSTEIN-BARR VIRUS INFECTION [None]
  - FATIGUE [None]
  - HEART TRANSPLANT REJECTION [None]
  - INTRA-AORTIC BALLOON PLACEMENT [None]
  - JUGULAR VEIN DISTENSION [None]
  - MYOCARDITIS [None]
  - OEDEMA PERIPHERAL [None]
  - PITTING OEDEMA [None]
  - VASCULITIS [None]
